FAERS Safety Report 18816589 (Version 9)
Quarter: 2022Q2

REPORT INFORMATION
  Report Type: Other
  Country: BE (occurrence: None)
  Receive Date: 20210201
  Receipt Date: 20220624
  Transmission Date: 20220720
  Serious: No
  Sender: FDA-Public Use
  Company Number: BE-ROCHE-2757087

PATIENT
  Age: 38 Year
  Sex: Female

DRUGS (30)
  1. OCRELIZUMAB [Suspect]
     Active Substance: OCRELIZUMAB
     Indication: Relapsing-remitting multiple sclerosis
     Dosage: 300 MG/ 250 ML?VISIT 2
     Route: 042
     Dates: start: 20190917, end: 20190917
  2. OCRELIZUMAB [Suspect]
     Active Substance: OCRELIZUMAB
     Dosage: 300 MG/ 250 ML?VISIT 3
     Route: 042
     Dates: start: 20191001, end: 20191001
  3. OCRELIZUMAB [Suspect]
     Active Substance: OCRELIZUMAB
     Dosage: DOSE: 600 MG/ 500 ML?VISIT 4
     Route: 042
     Dates: start: 20200421, end: 20200421
  4. OCRELIZUMAB [Suspect]
     Active Substance: OCRELIZUMAB
     Dosage: DOSE: 600 MG/ 500 ML?VISIT 5
     Route: 042
     Dates: start: 20201102, end: 20201102
  5. OCRELIZUMAB [Suspect]
     Active Substance: OCRELIZUMAB
     Route: 042
     Dates: start: 20210503, end: 20210503
  6. MIRABEGRON [Concomitant]
     Active Substance: MIRABEGRON
     Route: 048
     Dates: start: 201310
  7. BISOPROLOL [Concomitant]
     Active Substance: BISOPROLOL
     Indication: Migraine
     Route: 048
     Dates: start: 201501
  8. FLUOXETINE [Concomitant]
     Active Substance: FLUOXETINE HYDROCHLORIDE
     Indication: Anxiety
     Route: 048
     Dates: start: 201806
  9. TRAZODONE [Concomitant]
     Active Substance: TRAZODONE HYDROCHLORIDE
     Indication: Anxiety
     Route: 048
     Dates: start: 201806
  10. SEDISTRESS [Concomitant]
     Indication: Anxiety
     Route: 048
     Dates: start: 201806
  11. DAFALGAN [Concomitant]
     Active Substance: ACETAMINOPHEN
     Indication: Urinary tract infection
     Route: 048
     Dates: start: 20190918, end: 20190925
  12. DAFALGAN [Concomitant]
     Active Substance: ACETAMINOPHEN
     Indication: Premedication
     Dosage: SUBSEQUENT DOSE: 01/OCT/2019, 21/APR/2020, 02/NOV/2020
     Route: 048
     Dates: start: 20190917, end: 20190917
  13. DAFALGAN [Concomitant]
     Active Substance: ACETAMINOPHEN
     Route: 048
     Dates: start: 20201102, end: 20201102
  14. DAFALGAN [Concomitant]
     Active Substance: ACETAMINOPHEN
     Route: 048
     Dates: start: 20210503, end: 20210503
  15. DAFALGAN [Concomitant]
     Active Substance: ACETAMINOPHEN
     Route: 048
     Dates: start: 20211027, end: 20211027
  16. DAFALGAN [Concomitant]
     Active Substance: ACETAMINOPHEN
     Route: 048
     Dates: start: 20220425, end: 20220425
  17. SOLU-MEDROL [Concomitant]
     Active Substance: METHYLPREDNISOLONE SODIUM SUCCINATE
     Indication: Premedication
     Dosage: SUBSEQUENT DOSE: 01/OCT/2019, 21/APR/2020, 02/NOV/2020, 27/OCT/2021, 03/MAY/2021
     Route: 042
     Dates: start: 20190917, end: 20190917
  18. SOLU-MEDROL [Concomitant]
     Active Substance: METHYLPREDNISOLONE SODIUM SUCCINATE
     Route: 042
     Dates: start: 20201102, end: 20201102
  19. SOLU-MEDROL [Concomitant]
     Active Substance: METHYLPREDNISOLONE SODIUM SUCCINATE
     Route: 042
     Dates: start: 20210503, end: 20210503
  20. SOLU-MEDROL [Concomitant]
     Active Substance: METHYLPREDNISOLONE SODIUM SUCCINATE
     Route: 042
     Dates: start: 20220425, end: 20220425
  21. CETIRIZINE [Concomitant]
     Active Substance: CETIRIZINE HYDROCHLORIDE
     Indication: Premedication
     Dosage: SUBSEQUENT DOSE: 01/OCT/2019, 21/APR/2020, 02/NOV/2020
     Route: 048
     Dates: start: 20190917
  22. CETIRIZINE [Concomitant]
     Active Substance: CETIRIZINE HYDROCHLORIDE
     Dosage: PILL?AS REQUIRED
     Route: 048
     Dates: start: 20190918, end: 20190925
  23. CETIRIZINE [Concomitant]
     Active Substance: CETIRIZINE HYDROCHLORIDE
     Route: 048
     Dates: start: 20210503, end: 20210503
  24. CETIRIZINE [Concomitant]
     Active Substance: CETIRIZINE HYDROCHLORIDE
     Route: 048
     Dates: start: 20201102, end: 20201102
  25. CETIRIZINE [Concomitant]
     Active Substance: CETIRIZINE HYDROCHLORIDE
     Route: 048
     Dates: start: 20211027, end: 20211027
  26. CETIRIZINE [Concomitant]
     Active Substance: CETIRIZINE HYDROCHLORIDE
     Route: 048
     Dates: start: 20220425, end: 20220425
  27. ASTRAZENECA COVID-19 VACCINE [Concomitant]
     Active Substance: AZD-1222
     Indication: COVID-19 prophylaxis
     Route: 030
     Dates: start: 20210318, end: 20210318
  28. ASTRAZENECA COVID-19 VACCINE [Concomitant]
     Active Substance: AZD-1222
     Route: 030
     Dates: start: 20210610, end: 20210610
  29. PFIZER-BIONTECH COVID-19 VACCINE [Concomitant]
     Active Substance: TOZINAMERAN
     Dosage: 1 U
     Route: 030
     Dates: start: 20211222, end: 20211222
  30. DIETARY SUPPLEMENT\UBIDECARENONE [Concomitant]
     Active Substance: DIETARY SUPPLEMENT\UBIDECARENONE
     Indication: Fatigue
     Route: 048
     Dates: start: 20220425

REACTIONS (3)
  - Fatigue [Unknown]
  - Epstein-Barr virus infection [Recovered/Resolved]
  - Infectious mononucleosis [Recovered/Resolved]

NARRATIVE: CASE EVENT DATE: 20201001
